FAERS Safety Report 6391362-7 (Version None)
Quarter: 2009Q4

REPORT INFORMATION
  Report Type: 
  Country: None (occurrence: None)
  Receive Date: 20091007
  Receipt Date: 20090923
  Transmission Date: 20100525
  Serious: Yes (Hospitalization)
  Sender: FDA-Public Use
  Company Number: PHEH2009US11697

PATIENT
  Sex: Female

DRUGS (4)
  1. EXJADE [Suspect]
     Indication: BLOOD IRON INCREASED
     Dosage: 500 MG, QD
     Route: 048
     Dates: start: 20080925, end: 20090915
  2. AGRYLIN [Concomitant]
     Indication: MYELODYSPLASTIC SYNDROME
     Dosage: 0.5 MG, BID
     Route: 048
  3. ASPIRIN [Concomitant]
     Indication: MYELODYSPLASTIC SYNDROME
     Dosage: 81 MG, QD
     Route: 048
  4. ACYCLOVIR [Concomitant]
     Indication: MYELODYSPLASTIC SYNDROME

REACTIONS (2)
  - FALL [None]
  - HIP FRACTURE [None]
